FAERS Safety Report 7236452-1 (Version None)
Quarter: 2011Q1

REPORT INFORMATION
  Report Type: 
  Country: None (occurrence: None)
  Receive Date: 20110111
  Receipt Date: 20101228
  Transmission Date: 20110831
  Serious: Yes (Other)
  Sender: FDA-Public Use
  Company Number: FKO201000614

PATIENT
  Age: 65 Year
  Sex: Male

DRUGS (5)
  1. RITUXIMAB (RITUXIMAB) (RITUXIMAB) [Concomitant]
  2. PREDNISOLONE [Concomitant]
  3. DOXORUBICIN (MANUFACTURER UNKNOWN) (DOXORUBICIN HYDROCHLORIDE) (DOXORU [Suspect]
     Indication: DIFFUSE LARGE B-CELL LYMPHOMA
     Dosage: (85 MG)
  4. CYCLOPHOSPHAMIDE [Suspect]
     Indication: DIFFUSE LARGE B-CELL LYMPHOMA
     Dosage: (1300 MG)
  5. VINCRISTINE [Concomitant]

REACTIONS (3)
  - PYREXIA [None]
  - LISTERIOSIS [None]
  - NEUTROPENIA [None]
